FAERS Safety Report 5637061-8 (Version None)
Quarter: 2008Q1

REPORT INFORMATION
  Report Type: 
  Country: None (occurrence: None)
  Receive Date: 20080225
  Receipt Date: 20070801
  Transmission Date: 20080703
  Serious: No
  Sender: FDA-Public Use
  Company Number: US-BRISTOL-MYERS SQUIBB COMPANY-13864210

PATIENT
  Age: 39 Year
  Sex: Female
  Weight: 89 kg

DRUGS (2)
  1. GLUCOPHAGE [Suspect]
     Indication: DIABETES MELLITUS
     Route: 048
  2. GLIPIZIDE [Concomitant]

REACTIONS (1)
  - BLOOD GLUCOSE FLUCTUATION [None]
